FAERS Safety Report 7514699-4 (Version None)
Quarter: 2011Q2

REPORT INFORMATION
  Report Type: 
  Country: None (occurrence: None)
  Receive Date: 20110422
  Receipt Date: 20110128
  Transmission Date: 20111010
  Serious: No
  Sender: FDA-Public Use
  Company Number: 2011AL000004

PATIENT
  Sex: Male

DRUGS (1)
  1. FOLOTYN [Suspect]
     Indication: PERIPHERAL T-CELL LYMPHOMA UNSPECIFIED
     Dosage: 30 MG/M**2; QW; IV
     Route: 042
     Dates: start: 20110124, end: 20110124

REACTIONS (1)
  - PLEURAL EFFUSION [None]
